FAERS Safety Report 9292750 (Version 1)
Quarter: 2013Q2

REPORT INFORMATION
  Report Type: Spontaneous
  Country: US (occurrence: US)
  Receive Date: 20130516
  Receipt Date: 20130516
  Transmission Date: 20140414
  Serious: Yes (Other)
  Sender: FDA-Public Use
  Company Number: US-PFIZER INC-2013146787

PATIENT
  Sex: Female

DRUGS (1)
  1. LEVOXYL [Suspect]
     Dosage: 75 UG, 1X/DAY
     Route: 048

REACTIONS (6)
  - Diabetes mellitus [Unknown]
  - Deafness [Unknown]
  - Sinusitis [Unknown]
  - Hypertension [Unknown]
  - Tinnitus [Unknown]
  - Pulse pressure increased [Unknown]
